FAERS Safety Report 4734692-4 (Version None)
Quarter: 2005Q3

REPORT INFORMATION
  Report Type: 
  Country: None (occurrence: None)
  Receive Date: 20050804
  Receipt Date: 20050412
  Transmission Date: 20060218
  Serious: Yes (Hospitalization)
  Sender: FDA-Public Use
  Company Number: US-MERCK-0504USA02143

PATIENT
  Age: 56 Year
  Sex: Male
  Weight: 107 kg

DRUGS (13)
  1. VIOXX [Suspect]
     Indication: ARTHRALGIA
     Route: 048
     Dates: start: 20030619, end: 20040820
  2. VIOXX [Suspect]
     Indication: ARTHRITIS
     Route: 048
     Dates: start: 20030619, end: 20040820
  3. LOPRESSOR [Concomitant]
     Indication: HYPERTENSION
     Route: 065
     Dates: start: 19880101
  4. SAW PALMETTO [Concomitant]
     Indication: PROSTATISM
     Route: 065
  5. VITAMINS (UNSPECIFIED) [Concomitant]
     Route: 065
  6. ECOTRIN [Concomitant]
     Route: 065
  7. COSOPT [Concomitant]
     Route: 065
  8. HYDROCODONE BITARTRATE [Concomitant]
     Route: 065
  9. LUMIGAN [Concomitant]
     Route: 065
  10. ZYMAR [Concomitant]
     Route: 065
  11. ACULAR [Concomitant]
     Route: 065
  12. ZESTRIL [Concomitant]
     Route: 065
  13. QUIXIN [Concomitant]
     Route: 065

REACTIONS (8)
  - ARTHROPATHY [None]
  - BLOOD CHOLESTEROL INCREASED [None]
  - CATARACT [None]
  - GLAUCOMA [None]
  - LOWER LIMB FRACTURE [None]
  - MYOCARDIAL INFARCTION [None]
  - PAIN [None]
  - THROMBOSIS [None]
